FAERS Safety Report 4365173-8 (Version None)
Quarter: 2004Q2

REPORT INFORMATION
  Report Type: 
  Country: None (occurrence: None)
  Receive Date: 20040525
  Receipt Date: 20040301
  Transmission Date: 20050107
  Serious: No
  Sender: FDA-Public Use
  Company Number: PHEH2004US02546

PATIENT
  Age: 69 Year
  Sex: Female

DRUGS (3)
  1. ZELNORM [Suspect]
     Indication: CONSTIPATION
     Dosage: 2 MG BID
     Dates: start: 20040120
  2. FOSAMAX [Concomitant]
  3. MULTIVITAMIN [Concomitant]

REACTIONS (2)
  - FREQUENT BOWEL MOVEMENTS [None]
  - OEDEMA PERIPHERAL [None]
